FAERS Safety Report 24288547 (Version 2)
Quarter: 2024Q4

REPORT INFORMATION
  Report Type: Spontaneous
  Country: BR (occurrence: BR)
  Receive Date: 20240906
  Receipt Date: 20241010
  Transmission Date: 20250114
  Serious: Yes (Other)
  Sender: ACCORD
  Company Number: BR-Accord-444445

PATIENT
  Age: 55 Year
  Sex: Female

DRUGS (2)
  1. PACLITAXEL [Suspect]
     Active Substance: PACLITAXEL
     Indication: Breast cancer metastatic
     Dosage: 18 ML INFUSION, IN 180 MINUTES
     Route: 042
  2. PACLITAXEL [Suspect]
     Active Substance: PACLITAXEL
     Indication: Breast cancer metastatic
     Dosage: 343ML OF PACLITAXEL
     Route: 042

REACTIONS (9)
  - Flushing [Recovered/Resolved]
  - Suffocation feeling [Recovered/Resolved]
  - Restlessness [Recovered/Resolved]
  - Hypoxia [Unknown]
  - Erythema [Recovered/Resolved]
  - Hyperaemia [Recovered/Resolved]
  - Pruritus [Recovered/Resolved]
  - Nausea [Unknown]
  - Vomiting [Unknown]
